FAERS Safety Report 5320385-1 (Version None)
Quarter: 2007Q1

REPORT INFORMATION
  Report Type: 
  Country: None (occurrence: None)
  Receive Date: 20070220
  Receipt Date: 20061214
  Transmission Date: 20070707
  Serious: No
  Sender: FDA-Public Use
  Company Number: WAES 0612USA02875

PATIENT
  Sex: Female

DRUGS (2)
  1. JANUVIA UNK [Suspect]
     Indication: BLOOD GLUCOSE INCREASED
     Dosage: 100 MG/DAILY/PO
     Route: 048
  2. INSULIN [Concomitant]

REACTIONS (1)
  - PHARYNGOLARYNGEAL PAIN [None]
